FAERS Safety Report 4571175-9 (Version None)
Quarter: 2005Q1

REPORT INFORMATION
  Report Type: 
  Country: None (occurrence: None)
  Receive Date: 20050202
  Receipt Date: 20050113
  Transmission Date: 20050727
  Serious: Yes (Hospitalization)
  Sender: FDA-Public Use
  Company Number: GBT040901618

PATIENT
  Age: 52 Year
  Sex: Male
  Weight: 89 kg

DRUGS (5)
  1. ALIMTA [Suspect]
     Indication: MESOTHELIOMA
     Dosage: 1000MG/1 OTHER
     Dates: start: 20030624
  2. CISPLATIN [Suspect]
     Indication: MESOTHELIOMA
     Dosage: 150MG/1 OTHER
     Route: 050
     Dates: start: 20030624
  3. VITAMIN B-12 [Concomitant]
  4. FOLIC ACID [Concomitant]
  5. DEXAMETHASONE [Concomitant]

REACTIONS (4)
  - ANGIOPATHY [None]
  - MOUTH ULCERATION [None]
  - MUCOSAL INFLAMMATION [None]
  - ORAL PAIN [None]
